FAERS Safety Report 10679096 (Version 2)
Quarter: 2015Q1

REPORT INFORMATION
  Report Type: Spontaneous
  Country: US (occurrence: US)
  Receive Date: 20141229
  Receipt Date: 20150223
  Transmission Date: 20150720
  Serious: No
  Sender: FDA-Public Use
  Company Number: US-PFIZER INC-2014352345

PATIENT
  Sex: Female

DRUGS (2)
  1. TESSALON [Suspect]
     Active Substance: BENZONATATE
     Dosage: UNK
  2. CORTEF [Suspect]
     Active Substance: HYDROCORTISONE
     Indication: ADDISON^S DISEASE
     Dosage: 25 MG, DAILY (10MG EVERY MORNING AND THEN TAPERS IT THROUGHOUT THE REST OF THE DAY)
     Route: 048

REACTIONS (3)
  - Malaise [Unknown]
  - Urinary tract infection [Unknown]
  - Influenza [Unknown]

NARRATIVE: CASE EVENT DATE: 2014
